FAERS Safety Report 5412243-9 (Version None)
Quarter: 2007Q3

REPORT INFORMATION
  Report Type: 
  Country: None (occurrence: None)
  Receive Date: 20070713
  Receipt Date: 20070515
  Transmission Date: 20080115
  Serious: No
  Sender: FDA-Public Use
  Company Number: 2007SP001841

PATIENT
  Sex: Female
  Weight: 83.9154 kg

DRUGS (5)
  1. LUNESTA [Suspect]
     Indication: INSOMNIA
     Dosage: 3 MG;1X;ORAL  2 MG;HS;ORAL  2 MG;HS;ORAL
     Route: 048
     Dates: start: 20070201, end: 20070201
  2. LUNESTA [Suspect]
     Indication: INSOMNIA
     Dosage: 3 MG;1X;ORAL  2 MG;HS;ORAL  2 MG;HS;ORAL
     Route: 048
     Dates: start: 20070201, end: 20070201
  3. LUNESTA [Suspect]
     Indication: INSOMNIA
     Dosage: 3 MG;1X;ORAL  2 MG;HS;ORAL  2 MG;HS;ORAL
     Route: 048
     Dates: start: 20070511, end: 20070513
  4. ESTROGENS CONJUGATED [Concomitant]
  5. AMBIEN [Concomitant]

REACTIONS (2)
  - DIZZINESS [None]
  - NIGHTMARE [None]
